FAERS Safety Report 9733980 (Version 2)
Quarter: 2015Q1

REPORT INFORMATION
  Report Type: Spontaneous
  Country: US (occurrence: US)
  Receive Date: 20131205
  Receipt Date: 20150220
  Transmission Date: 20150721
  Serious: Yes (Other)
  Sender: FDA-Public Use
  Company Number: US-JNJFOC-20131116283

PATIENT

DRUGS (1)
  1. TOPIRAMATE. [Suspect]
     Active Substance: TOPIRAMATE
     Indication: SEIZURE
     Dosage: 8 MG/KG/DAY. (RANGE 1.4-23.6)
     Route: 048

REACTIONS (6)
  - Haematuria [Unknown]
  - Hypocitraturia [Unknown]
  - Hypercalciuria [Unknown]
  - pH urine increased [Unknown]
  - Dysuria [Unknown]
  - Abdominal pain [Unknown]
